FAERS Safety Report 23423375 (Version 1)
Quarter: 2024Q1

REPORT INFORMATION
  Report Type: Spontaneous
  Country: US (occurrence: None)
  Receive Date: 20240119
  Receipt Date: 20240119
  Transmission Date: 20240410
  Serious: Yes (Other)
  Sender: FDA-Public Use
  Company Number: None

PATIENT
  Age: 34 Year
  Sex: Female
  Weight: 83.7 kg

DRUGS (1)
  1. SEMAGLUTIDE [Suspect]
     Active Substance: SEMAGLUTIDE
     Indication: Weight decreased
     Dosage: OTHER QUANTITY : 1 10 UNITS (0.10ML);?OTHER FREQUENCY : WEEKLY;?OTHER ROUTE : SUBCU BELLY;?
     Route: 050
     Dates: start: 20231226

REACTIONS (3)
  - Menstrual disorder [None]
  - Heavy menstrual bleeding [None]
  - Back pain [None]

NARRATIVE: CASE EVENT DATE: 20231227
